FAERS Safety Report 4694484-1 (Version None)
Quarter: 2005Q2

REPORT INFORMATION
  Report Type: 
  Country: None (occurrence: None)
  Receive Date: 20050620
  Receipt Date: 19841212
  Transmission Date: 20051028
  Serious: Yes (Disabling, Congenital Anomaly)
  Sender: FDA-Public Use
  Company Number: US-ROCHE-850200024001

PATIENT
  Sex: Male

DRUGS (5)
  1. ACCUTANE [Suspect]
     Indication: DRUG USE FOR UNKNOWN INDICATION
     Dates: start: 19820615
  2. XANAX [Concomitant]
     Dates: start: 19840415, end: 19840507
  3. IMIPRAMINE [Concomitant]
     Dates: start: 19840415, end: 19840507
  4. AMPICILLIN [Concomitant]
     Dates: start: 19840415, end: 19840507
  5. TAGAMET [Concomitant]
     Dates: start: 19840415, end: 19840507

REACTIONS (11)
  - ANXIETY [None]
  - BREECH PRESENTATION [None]
  - CEREBRAL DISORDER [None]
  - CONGENITAL CENTRAL NERVOUS SYSTEM ANOMALY [None]
  - FOETAL GROWTH RETARDATION [None]
  - GASTRIC DISORDER [None]
  - ILL-DEFINED DISORDER [None]
  - INGUINAL HERNIA [None]
  - LIMB REDUCTION DEFECT [None]
  - PREMATURE LABOUR [None]
  - TRANSMISSION OF DRUG VIA SEMEN [None]
